FAERS Safety Report 9119351 (Version 4)
Quarter: 2014Q3

REPORT INFORMATION
  Report Type: Spontaneous
  Country: NO (occurrence: NO)
  Receive Date: 20130226
  Receipt Date: 20140722
  Transmission Date: 20150326
  Serious: Yes (Hospitalization, Disabling, Other)
  Sender: FDA-Public Use
  Company Number: NO-AMGEN-NORSP2013012963

PATIENT
  Age: 57 Year
  Sex: Male

DRUGS (5)
  1. VENTOLIN [Concomitant]
     Active Substance: ALBUTEROL SULFATE
     Dosage: UNK
  2. ENBREL [Suspect]
     Active Substance: ETANERCEPT
     Dosage: 50 MG, WEEKLY
     Route: 065
     Dates: start: 201002, end: 201212
  3. ENBREL [Suspect]
     Active Substance: ETANERCEPT
     Indication: PRODUCT USED FOR UNKNOWN INDICATION
     Dosage: 50 MG, WEEKLY
     Route: 058
     Dates: start: 200608, end: 200806
  4. IBUX [Concomitant]
     Active Substance: IBUPROFEN
     Dosage: 600 MG X 3
  5. ENALAPRIL [Concomitant]
     Active Substance: ENALAPRIL
     Dosage: UNK

REACTIONS (27)
  - Parosmia [Unknown]
  - Musculoskeletal stiffness [Unknown]
  - Hypertensive heart disease [Unknown]
  - Sinus congestion [Unknown]
  - Activities of daily living impaired [Unknown]
  - Aortic disorder [Unknown]
  - Arthralgia [Unknown]
  - Optic neuritis [Unknown]
  - Demyelination [Unknown]
  - Hypoaesthesia [Not Recovered/Not Resolved]
  - Condition aggravated [Unknown]
  - Headache [Unknown]
  - Pain [Unknown]
  - Musculoskeletal pain [Unknown]
  - Aortic valve incompetence [Unknown]
  - Multiple sclerosis [Not Recovered/Not Resolved]
  - Neck pain [Unknown]
  - Uveitis [Unknown]
  - Cough [Unknown]
  - Pain in extremity [Unknown]
  - Chills [Unknown]
  - Brain injury [Unknown]
  - Pruritus [Unknown]
  - Joint stiffness [Unknown]
  - Somnolence [Unknown]
  - Fatigue [Unknown]
  - Psoriasis [Unknown]

NARRATIVE: CASE EVENT DATE: 2008
